FAERS Safety Report 5701864-1 (Version None)
Quarter: 2008Q2

REPORT INFORMATION
  Report Type: 
  Country: None (occurrence: None)
  Receive Date: 20080411
  Receipt Date: 20080407
  Transmission Date: 20081010
  Serious: Yes (Hospitalization)
  Sender: FDA-Public Use
  Company Number: US-BRISTOL-MYERS SQUIBB COMPANY-14129035

PATIENT
  Sex: Female

DRUGS (6)
  1. CISPLATIN [Suspect]
     Indication: GASTRIC CANCER
     Dosage: LAST ADMINSTERED ON 19FEB08.
     Route: 042
     Dates: start: 20080219
  2. DOCETAXEL [Suspect]
     Indication: GASTRIC CANCER
     Route: 042
     Dates: start: 20080219
  3. FOLINIC ACID [Suspect]
     Indication: GASTRIC CANCER
     Route: 042
     Dates: start: 20071113, end: 20080206
  4. IRINOTECAN HCL [Suspect]
     Indication: GASTRIC CANCER
     Route: 042
     Dates: start: 20071113, end: 20080205
  5. FLUOROURACIL [Suspect]
     Indication: GASTRIC CANCER
     Dosage: 320 MG/M2 1/2/WEEKS IV BOLUS..
     Route: 042
     Dates: start: 20071113, end: 20080206
  6. OMEPRAZOLE [Concomitant]
     Dosage: LAST ADMINSTERED ON 22FEB08.

REACTIONS (3)
  - DIARRHOEA [None]
  - NEUTROPENIA [None]
  - SYNCOPE [None]
